FAERS Safety Report 10063749 (Version 1)
Quarter: 2014Q2

REPORT INFORMATION
  Report Type: Spontaneous
  Country: ES (occurrence: ES)
  Receive Date: 20140408
  Receipt Date: 20140408
  Transmission Date: 20141212
  Serious: Yes (Other)
  Sender: FDA-Public Use
  Company Number: ES-ROCHE-1373816

PATIENT
  Age: 50 Year
  Sex: Male

DRUGS (3)
  1. PEGASYS [Suspect]
     Indication: HEPATITIS C
     Dosage: 180 MICROGRAMS SOLUTION FOR INJECTION IN PRE-FILLED PEN, 4 PRE-FILLED PENS OF 0.5 ML
     Route: 058
     Dates: start: 20130316, end: 20140117
  2. INCIVO [Suspect]
     Indication: HEPATITIS C
     Dosage: 375 MG FILM COATED TABLETS, 168 TABLETS
     Route: 048
     Dates: start: 20130316, end: 20130607
  3. REBETOL [Suspect]
     Indication: HEPATITIS C
     Route: 048
     Dates: start: 20130316, end: 20140117

REACTIONS (1)
  - Pancreatic carcinoma [Unknown]
